FAERS Safety Report 18136906 (Version 1)
Quarter: 2020Q3

REPORT INFORMATION
  Report Type: Spontaneous
  Country: US (occurrence: US)
  Receive Date: 20200812
  Receipt Date: 20200812
  Transmission Date: 20201103
  Serious: No
  Sender: FDA-Public Use
  Company Number: US-JNJFOC-20191130379

PATIENT

DRUGS (2)
  1. BENEFIBER                          /00677201/ [Concomitant]
     Active Substance: ICODEXTRIN
  2. IMODIUM MULTI?SYMPTOM RELIEF [Suspect]
     Active Substance: DIMETHICONE\LOPERAMIDE HYDROCHLORIDE
     Indication: COLITIS
     Route: 048

REACTIONS (2)
  - Product packaging issue [Unknown]
  - Contraindicated product administered [Unknown]
